FAERS Safety Report 10207861 (Version 1)
Quarter: 2014Q2

REPORT INFORMATION
  Report Type: Spontaneous
  Country: US (occurrence: US)
  Receive Date: 20140530
  Receipt Date: 20140530
  Transmission Date: 20141212
  Serious: No
  Sender: FDA-Public Use
  Company Number: US-GLAXOSMITHKLINE-A1063352A

PATIENT
  Age: 60 Year
  Sex: Female

DRUGS (3)
  1. VENTOLIN [Suspect]
     Indication: ILL-DEFINED DISORDER
     Dosage: 2PUFF PER DAY
     Route: 055
     Dates: start: 201401
  2. VIREAD [Concomitant]
  3. LORAZEPAM [Concomitant]

REACTIONS (4)
  - Feeling abnormal [Recovering/Resolving]
  - Panic reaction [Recovering/Resolving]
  - Wheezing [Recovering/Resolving]
  - Cough [Recovering/Resolving]
